FAERS Safety Report 9251673 (Version 1)
Quarter: 2013Q1

REPORT INFORMATION
  Report Type: Spontaneous
  Country: US (occurrence: None)
  Receive Date: 20130305
  Receipt Date: 20130305
  Transmission Date: 20140127
  Serious: Yes (Other)
  Sender: FDA-Public Use
  Company Number: 163-21880-12091241

PATIENT
  Age: 80 Year
  Sex: Female

DRUGS (1)
  1. REVLIMID [Suspect]
     Indication: PLASMA CELL MYELOMA
     Dosage: 08/14/2012 - UNKNOWN, CAPSULE, 10 MG, 21 IN 28 D, PO

REACTIONS (5)
  - Constipation [None]
  - Pruritus [None]
  - Fatigue [None]
  - Dizziness [None]
  - Dyspnoea [None]
